FAERS Safety Report 13752795 (Version 2)
Quarter: 2017Q4

REPORT INFORMATION
  Report Type: Report from Study
  Country: CA (occurrence: CA)
  Receive Date: 20170714
  Receipt Date: 20171024
  Transmission Date: 20180320
  Serious: Yes (Hospitalization, Disabling)
  Sender: FDA-Public Use
  Company Number: CA-EMD SERONO-230299J08CAN

PATIENT
  Age: 54 Year
  Sex: Male

DRUGS (2)
  1. REBIF [Suspect]
     Active Substance: INTERFERON BETA-1A
     Indication: RELAPSING-REMITTING MULTIPLE SCLEROSIS
     Route: 058
     Dates: start: 20060926
  2. ALERTEC [Concomitant]
     Active Substance: MODAFINIL
     Indication: PRODUCT USED FOR UNKNOWN INDICATION

REACTIONS (9)
  - Feeling abnormal [Unknown]
  - Drug dose omission [Unknown]
  - Myocardial infarction [Recovered/Resolved]
  - Arthritis bacterial [Recovered/Resolved]
  - Multiple sclerosis [Unknown]
  - Fatigue [Recovered/Resolved]
  - Deafness [Not Recovered/Not Resolved]
  - Arthritis [Recovered/Resolved]
  - Arthralgia [Unknown]

NARRATIVE: CASE EVENT DATE: 200910
